FAERS Safety Report 23214098 (Version 2)
Quarter: 2023Q4

REPORT INFORMATION
  Report Type: Report from Study
  Country: US (occurrence: US)
  Receive Date: 20231121
  Receipt Date: 20231127
  Transmission Date: 20240110
  Serious: Yes (Hospitalization, Other)
  Sender: FDA-Public Use
  Company Number: US-ABBVIE-5498975

PATIENT
  Age: 93 Year
  Sex: Male

DRUGS (3)
  1. VENCLEXTA [Suspect]
     Active Substance: VENETOCLAX
     Indication: Chronic lymphocytic leukaemia
     Route: 048
     Dates: start: 20231109
  2. VENCLEXTA [Suspect]
     Active Substance: VENETOCLAX
     Indication: Chronic lymphocytic leukaemia
     Route: 048
     Dates: start: 20231108, end: 20231108
  3. CEPHALEXIN [Suspect]
     Active Substance: CEPHALEXIN
     Indication: Infection
     Route: 065
     Dates: start: 2023

REACTIONS (5)
  - Rehabilitation therapy [Recovered/Resolved]
  - Hospitalisation [Unknown]
  - Rash papular [Unknown]
  - Exfoliative rash [Unknown]
  - Dry skin [Unknown]

NARRATIVE: CASE EVENT DATE: 20231101
